FAERS Safety Report 21425718 (Version 1)
Quarter: 2022Q4

REPORT INFORMATION
  Report Type: Spontaneous
  Country: FR (occurrence: FR)
  Receive Date: 20221008
  Receipt Date: 20221008
  Transmission Date: 20230113
  Serious: Yes (Hospitalization)
  Sender: FDA-Public Use
  Company Number: None

PATIENT
  Age: 58 Year
  Sex: Male

DRUGS (7)
  1. KETOPROFEN [Suspect]
     Active Substance: KETOPROFEN
     Indication: Sciatica
     Dosage: UNIT DOSE: 100 MG, FREQ TIME 12 HOURS, DURATION 12 DAYS
     Route: 065
     Dates: start: 20220812, end: 20220824
  2. PANTOPRAZOLE [Suspect]
     Active Substance: PANTOPRAZOLE
     Indication: Prophylaxis against gastrointestinal ulcer
     Dosage: UNIT DOSE: 20 MG, FREQ TIME 1 DAY, DURATION 12 DAYS
     Route: 065
     Dates: start: 20220812, end: 20220824
  3. POLYETHYLENE GLYCOLS [Suspect]
     Active Substance: POLYETHYLENE GLYCOLS
     Indication: Constipation
     Dosage: UNIT DOSE: 1 DF, FREQ TIME 1 DAY, DURATION, 5 DAYS
     Route: 065
     Dates: start: 20220812, end: 20220817
  4. LOVENOX [Suspect]
     Active Substance: ENOXAPARIN SODIUM
     Indication: Thrombosis prophylaxis
     Dosage: UNIT DOSE: 4000 IU, FREQ TIME 1 DAY, DURATION, 5 DAYS
     Route: 065
     Dates: start: 20220812, end: 20220817
  5. CODEINE [Suspect]
     Active Substance: CODEINE
     Indication: Sciatica
     Dosage: UNIT DOSE: 60 MG, FREQ TIME 8 HOURS, DURATION, 11 DAYS
     Route: 065
     Dates: start: 20220817, end: 20220828
  6. METHYLPREDNISOLONE [Suspect]
     Active Substance: METHYLPREDNISOLONE
     Indication: Sciatica
     Dosage: UNIT DOSE: 120 MG, FREQ TIME 1 DAY, DURATION, 1 DAYS
     Route: 065
     Dates: start: 20220816, end: 20220817
  7. PREDNISONE [Suspect]
     Active Substance: PREDNISONE
     Indication: Sciatica
     Dosage: UNIT DOSE: 1 DF, FREQ TIME 1 TOTAL, DURATION, 1 DAYS
     Dates: start: 20220902, end: 20220902

REACTIONS (1)
  - Vascular purpura [Recovering/Resolving]

NARRATIVE: CASE EVENT DATE: 20220903
